FAERS Safety Report 10249180 (Version 1)
Quarter: 2014Q2

REPORT INFORMATION
  Report Type: Spontaneous
  Country: CN (occurrence: CN)
  Receive Date: 20140620
  Receipt Date: 20140620
  Transmission Date: 20141212
  Serious: Yes (Hospitalization)
  Sender: FDA-Public Use
  Company Number: CN-MALLINCKRODT-T201402501

PATIENT
  Age: 60 Year
  Sex: Male
  Weight: 50 kg

DRUGS (1)
  1. OPTIRAY [Suspect]
     Indication: ARTERIOGRAM CORONARY
     Dosage: 66 ML, SINGLE, NOT WARMED, 5.0 ML/S
     Route: 042
     Dates: start: 20140612, end: 20140612

REACTIONS (1)
  - Anaphylactic shock [Not Recovered/Not Resolved]
